FAERS Safety Report 10005967 (Version 1)
Quarter: 2014Q1

REPORT INFORMATION
  Report Type: Spontaneous
  Country: US (occurrence: US)
  Receive Date: 20140313
  Receipt Date: 20140313
  Transmission Date: 20141002
  Serious: No
  Sender: FDA-Public Use
  Company Number: US-009507513-1403USA006337

PATIENT
  Sex: Female

DRUGS (5)
  1. PEGINTRON [Suspect]
     Indication: HEPATITIS C
     Dosage: 0.5 ML, QW
     Dates: start: 20140113
  2. REBETOL [Suspect]
     Indication: HEPATITIS C
     Dosage: 600MGA.M./400MGP.M, BID
     Route: 048
     Dates: start: 20140113
  3. SOVALDI [Concomitant]
     Dosage: 400 MG, UNK
  4. TYLENOL [Concomitant]
     Dosage: 325 MG, UNK
  5. MUCINEX [Concomitant]
     Dosage: 2400 MG, UNK

REACTIONS (4)
  - Pain [Not Recovered/Not Resolved]
  - Fatigue [Not Recovered/Not Resolved]
  - Pyrexia [Unknown]
  - Cough [Unknown]
